FAERS Safety Report 16977667 (Version 1)
Quarter: 2019Q4

REPORT INFORMATION
  Report Type: Other
  Country: SI (occurrence: SI)
  Receive Date: 20191031
  Receipt Date: 20191031
  Transmission Date: 20200122
  Serious: Yes (Hospitalization)
  Sender: FDA-Public Use
  Company Number: SI-ASPEN-GLO2019SI011122

PATIENT
  Age: 59 Year
  Sex: Male

DRUGS (9)
  1. DORETA [Concomitant]
     Active Substance: ACETAMINOPHEN\TRAMADOL HYDROCHLORIDE
     Indication: PRODUCT USED FOR UNKNOWN INDICATION
     Dosage: 37,5 MG/325 MG TBL, AS NECESSARY
     Route: 065
     Dates: start: 2018
  2. LEKADOL [Concomitant]
     Active Substance: ACETAMINOPHEN
     Indication: PRODUCT USED FOR UNKNOWN INDICATION
     Dosage: 3000MG QD, AS NECESSARY
     Route: 065
  3. DULSEVIA [Concomitant]
     Indication: PRODUCT USED FOR UNKNOWN INDICATION
     Dosage: 60 MG, QD. LONG-TERM THERAPY.
     Route: 065
  4. MABTHERA [Suspect]
     Active Substance: RITUXIMAB
     Dosage: STRENGTH: 100 MG CONCENTRATE FOR SOLUTION FOR INFUSION (BIOLOGICAL DRUG)
     Route: 042
     Dates: start: 201905, end: 20190823
  5. LEUKERAN [Suspect]
     Active Substance: CHLORAMBUCIL
     Indication: B-CELL SMALL LYMPHOCYTIC LYMPHOMA
     Dosage: 2 MG TBL; FIRST TWO CYCLES: 12 MG EVERY OTHER DAY, 3RD AND 4TH. CYCLE: 8 MG EVERY OTHER DAY
     Route: 048
  6. MABTHERA [Suspect]
     Active Substance: RITUXIMAB
     Indication: B-CELL SMALL LYMPHOCYTIC LYMPHOMA
     Dosage: STRENGTH: 500 MG CONCENTRATE FOR SOLUTION FOR INFUSION
     Route: 042
     Dates: start: 201905, end: 20190823
  7. MEDROL [Concomitant]
     Active Substance: METHYLPREDNISOLONE
     Indication: PRODUCT USED FOR UNKNOWN INDICATION
     Dosage: 80 MG QD, 4 CONSECUTIVE DAYS AFTER RECEIVING CHEMOTHERAPY
     Route: 065
  8. ENTECAVIR MONOHYDRATE [Concomitant]
     Active Substance: ENTECAVIR
     Indication: PRODUCT USED FOR UNKNOWN INDICATION
     Dosage: 0.5 MG, QD
     Route: 065
     Dates: start: 201905
  9. NOLPAZA [Concomitant]
     Active Substance: PANTOPRAZOLE SODIUM
     Indication: PRODUCT USED FOR UNKNOWN INDICATION
     Dosage: 20 MG, QD, LONG-TERM THERAPY.
     Route: 065

REACTIONS (1)
  - Pneumonitis [Recovered/Resolved]

NARRATIVE: CASE EVENT DATE: 20190912
